FAERS Safety Report 18986807 (Version 4)
Quarter: 2023Q4

REPORT INFORMATION
  Report Type: Spontaneous
  Country: US (occurrence: US)
  Receive Date: 20210309
  Receipt Date: 20231023
  Transmission Date: 20240109
  Serious: Yes (Other)
  Sender: FDA-Public Use
  Company Number: US-GILEAD-2021-0519943

PATIENT
  Age: 61 Year
  Sex: Male
  Weight: 102.95 kg

DRUGS (67)
  1. TRUVADA [Suspect]
     Active Substance: EMTRICITABINE\TENOFOVIR DISOPROXIL FUMARATE
     Indication: HIV infection
     Dosage: UNK
     Route: 048
     Dates: start: 2008
  2. TRUVADA [Suspect]
     Active Substance: EMTRICITABINE\TENOFOVIR DISOPROXIL FUMARATE
     Dosage: UNK
     Route: 048
     Dates: start: 20110103, end: 201901
  3. JULUCA [Concomitant]
     Active Substance: DOLUTEGRAVIR SODIUM\RILPIVIRINE HYDROCHLORIDE
  4. VIRAMUNE XR [Concomitant]
     Active Substance: NEVIRAPINE
  5. ALPHA LIPOIC ACID [Concomitant]
     Active Substance: .ALPHA.-LIPOIC ACID
  6. AMLODIPINE BESYLATE [Concomitant]
     Active Substance: AMLODIPINE BESYLATE
  7. AMOXICILLIN [Concomitant]
     Active Substance: AMOXICILLIN
  8. ANDROGEL [Concomitant]
     Active Substance: TESTOSTERONE
  9. AVODART [Concomitant]
     Active Substance: DUTASTERIDE
  10. BELSOMRA [Concomitant]
     Active Substance: SUVOREXANT
  11. BETAMETHASONE [Concomitant]
     Active Substance: BETAMETHASONE
  12. CALCIPOTRIENE [Concomitant]
     Active Substance: CALCIPOTRIENE
  13. CARVEDILOL [Concomitant]
     Active Substance: CARVEDILOL
  14. CEPHALEXIN [Concomitant]
     Active Substance: CEPHALEXIN
  15. CIALIS [Concomitant]
     Active Substance: TADALAFIL
  16. CICLOPIROX [Concomitant]
     Active Substance: CICLOPIROX
  17. CIPROFLOXACIN HYDROCHLORIDE [Concomitant]
     Active Substance: CIPROFLOXACIN HYDROCHLORIDE
  18. CIPROFLOXACIN [Concomitant]
     Active Substance: CIPROFLOXACIN
  19. CLINDAMYCIN PHOSPHATE [Concomitant]
     Active Substance: CLINDAMYCIN PHOSPHATE
  20. CLOBETASOL [Concomitant]
     Active Substance: CLOBETASOL
  21. CLOBEX [Concomitant]
     Active Substance: CLOBETASOL PROPIONATE
  22. CLOTRIMAZOLE [Concomitant]
     Active Substance: CLOTRIMAZOLE
  23. COMPRO [Concomitant]
     Active Substance: PROCHLORPERAZINE
  24. CUTIVATE [CLOBETASOL PROPIONATE] [Concomitant]
  25. DESONIDE [Concomitant]
     Active Substance: DESONIDE
  26. DIFLORASONE DIACETATE [Concomitant]
     Active Substance: DIFLORASONE DIACETATE
  27. FINASTERIDE [Concomitant]
     Active Substance: FINASTERIDE
  28. FLUCONAZOLE [Concomitant]
     Active Substance: FLUCONAZOLE
  29. FLUOCINOLONE [Concomitant]
     Active Substance: FLUOCINOLONE
  30. FLUOCINONIDE [Concomitant]
     Active Substance: FLUOCINONIDE
  31. FOLIC ACID [Concomitant]
     Active Substance: FOLIC ACID
  32. HALOBETASOL [Concomitant]
     Active Substance: HALOBETASOL
  33. HALOG [Concomitant]
     Active Substance: HALCINONIDE
  34. HIBICLENS [Concomitant]
     Active Substance: CHLORHEXIDINE GLUCONATE
  35. HYDROCHLOROTHIAZIDE [Concomitant]
     Active Substance: HYDROCHLOROTHIAZIDE
  36. HYDROCORTISONE [Concomitant]
     Active Substance: HYDROCORTISONE
  37. HYDROQUINONE [Concomitant]
     Active Substance: HYDROQUINONE
  38. IBUPROFEN [Concomitant]
     Active Substance: IBUPROFEN
  39. LABETALOL [Concomitant]
     Active Substance: LABETALOL\LABETALOL HYDROCHLORIDE
  40. MECLIZINE [Concomitant]
     Active Substance: MECLIZINE HYDROCHLORIDE
  41. MELOXICAM [Concomitant]
     Active Substance: MELOXICAM
  42. METHOTREXATE [Concomitant]
     Active Substance: METHOTREXATE
  43. METHYLPREDNISOLONE [Concomitant]
     Active Substance: METHYLPREDNISOLONE
  44. METOPROLOL [Concomitant]
     Active Substance: METOPROLOL
  45. METRONIDAZOLE [Concomitant]
     Active Substance: METRONIDAZOLE
  46. DIETARY SUPPLEMENT\HERBALS\MILK THISTLE [Concomitant]
     Active Substance: MILK THISTLE
  47. MYRBETRIQ [Concomitant]
     Active Substance: MIRABEGRON
  48. NEOMYCIN [Concomitant]
     Active Substance: NEOMYCIN
  49. NEVIRAPINE [Concomitant]
     Active Substance: NEVIRAPINE
  50. ONDANSETRON [Concomitant]
     Active Substance: ONDANSETRON
  51. OXYCODONE [Concomitant]
     Active Substance: OXYCODONE
  52. PANTOPRAZOLE [Concomitant]
     Active Substance: PANTOPRAZOLE
  53. PHENAZOPYRIDINE [Concomitant]
     Active Substance: PHENAZOPYRIDINE
  54. PSORCON [Concomitant]
     Active Substance: DIFLORASONE DIACETATE
  55. SALVAX [Concomitant]
     Active Substance: SALICYLIC ACID
  56. SORIATANE [Concomitant]
     Active Substance: ACITRETIN
  57. SORILUX [Concomitant]
     Active Substance: CALCIPOTRIENE
  58. TAMSULOSIN [Concomitant]
     Active Substance: TAMSULOSIN
  59. TELMISARTAN [Concomitant]
     Active Substance: TELMISARTAN
  60. DESOXIMETASONE [Concomitant]
     Active Substance: DESOXIMETASONE
  61. TOVIAZ [Concomitant]
     Active Substance: FESOTERODINE FUMARATE
  62. TRIAMCINOLONE [Concomitant]
     Active Substance: TRIAMCINOLONE
  63. TRIAMTERENE [Concomitant]
     Active Substance: TRIAMTERENE
  64. VITAMIN C [Concomitant]
     Active Substance: ASCORBIC ACID
  65. VITAMIN D NOS [Concomitant]
     Active Substance: VITAMIN D NOS
  66. ZOLPIDEM [Concomitant]
     Active Substance: ZOLPIDEM TARTRATE
  67. DYAZIDE [Concomitant]
     Active Substance: HYDROCHLOROTHIAZIDE\TRIAMTERENE

REACTIONS (7)
  - Chronic kidney disease [Not Recovered/Not Resolved]
  - Renal impairment [Unknown]
  - Emotional distress [Not Recovered/Not Resolved]
  - Anhedonia [Not Recovered/Not Resolved]
  - Anxiety [Not Recovered/Not Resolved]
  - Pain [Not Recovered/Not Resolved]
  - Weight increased [Unknown]

NARRATIVE: CASE EVENT DATE: 20150701
